FAERS Safety Report 16715987 (Version 3)
Quarter: 2019Q3

REPORT INFORMATION
  Report Type: Spontaneous
  Country: US (occurrence: US)
  Receive Date: 20190819
  Receipt Date: 20190909
  Transmission Date: 20191005
  Serious: No
  Sender: FDA-Public Use
  Company Number: US-PFIZER INC-2019350132

PATIENT
  Age: 46 Year
  Sex: Male
  Weight: 86 kg

DRUGS (7)
  1. LYRICA [Suspect]
     Active Substance: PREGABALIN
     Indication: HYPERSENSITIVITY
     Dosage: 75 MG, 2X/DAY
     Route: 048
     Dates: end: 201907
  2. LYRICA [Suspect]
     Active Substance: PREGABALIN
     Dosage: 600 MG, UNK
  3. LYRICA [Suspect]
     Active Substance: PREGABALIN
     Indication: PAIN
     Dosage: 100 MG, 3X/DAY
  4. LYRICA [Suspect]
     Active Substance: PREGABALIN
     Dosage: 300 MG, DAILY (TAKE 1 CAPSULE BY MOUTH EVERY MORNING AND 2 CAPSULES EVERY EVENING )
     Route: 048
  5. LORAZEPAM. [Concomitant]
     Active Substance: LORAZEPAM
     Indication: HYPERSENSITIVITY
     Dosage: 2 MG, 2X/DAY (IN THE MORNING AND NIGHT)
     Route: 048
  6. LYRICA [Suspect]
     Active Substance: PREGABALIN
     Indication: IRRITABLE BOWEL SYNDROME
     Dosage: 100 MG, 3X/DAY
     Route: 048
  7. LORAZEPAM. [Concomitant]
     Active Substance: LORAZEPAM
     Indication: PAIN

REACTIONS (5)
  - Drug ineffective for unapproved indication [Unknown]
  - Increased appetite [Unknown]
  - Off label use [Unknown]
  - Intentional product use issue [Unknown]
  - Weight increased [Not Recovered/Not Resolved]
